FAERS Safety Report 14287781 (Version 1)
Quarter: 2017Q4

REPORT INFORMATION
  Report Type: Spontaneous
  Country: US (occurrence: US)
  Receive Date: 20171214
  Receipt Date: 20171214
  Transmission Date: 20180321
  Serious: Yes (Hospitalization, Other)
  Sender: FDA-Public Use
  Company Number: US-ENDO PHARMACEUTICALS INC-2017-000512

PATIENT
  Age: 64 Year
  Sex: Male
  Weight: 83.9 kg

DRUGS (11)
  1. TESTIM [Suspect]
     Active Substance: TESTOSTERONE
     Indication: ANDROGEN REPLACEMENT THERAPY
     Dosage: 50 MG, DAILY
     Route: 065
     Dates: start: 20100607, end: 20130112
  2. RAPAFLO [Concomitant]
     Active Substance: SILODOSIN
     Indication: PROPHYLAXIS
     Dosage: UNK UNKNOWN, UNKNOWN
     Route: 065
     Dates: start: 2008
  3. HYDROCODONE [Concomitant]
     Active Substance: HYDROCODONE
     Indication: MYALGIA
     Dosage: UNK UNKNOWN, UNKNOWN
     Route: 065
  4. CIALIS [Concomitant]
     Active Substance: TADALAFIL
     Indication: PRODUCT USED FOR UNKNOWN INDICATION
     Dosage: UNK UNKNOWN, UNKNOWN
     Route: 065
     Dates: start: 20101025, end: 20130104
  5. ENOXAPARIN [Concomitant]
     Active Substance: ENOXAPARIN
     Indication: PRODUCT USED FOR UNKNOWN INDICATION
     Dosage: UNK UNKNOWN, UNKNOWN
     Route: 065
     Dates: start: 20110606, end: 20120203
  6. METOPROLOL. [Concomitant]
     Active Substance: METOPROLOL
     Indication: PRODUCT USED FOR UNKNOWN INDICATION
     Dosage: UNK UNKNOWN, UNKNOWN
     Route: 065
     Dates: start: 20110606, end: 20111015
  7. SOTALOL HYDROCHLORIDE TABLETS [Concomitant]
     Active Substance: SOTALOL HYDROCHLORIDE
     Indication: ARRHYTHMIA
     Dosage: UNK UNKNOWN, UNKNOWN
     Route: 065
     Dates: start: 2006
  8. ATENOLOL TABLETS [Concomitant]
     Active Substance: ATENOLOL
     Indication: PRODUCT USED FOR UNKNOWN INDICATION
     Dosage: UNK UNKNOWN, UNKNOWN
     Route: 065
     Dates: start: 2004, end: 20110408
  9. WARFARIN [Concomitant]
     Active Substance: WARFARIN
     Indication: CEREBROVASCULAR ACCIDENT
     Dosage: UNK UNKNOWN, UNKNOWN
     Route: 065
     Dates: start: 2007
  10. NEXIUM [Concomitant]
     Active Substance: ESOMEPRAZOLE MAGNESIUM
     Indication: PRODUCT USED FOR UNKNOWN INDICATION
     Dosage: UNK UNKNOWN, UNKNOWN
     Route: 065
     Dates: start: 20110801, end: 20111002
  11. ANDROGEL [Suspect]
     Active Substance: TESTOSTERONE
     Indication: ANDROGEN REPLACEMENT THERAPY
     Dosage: UNK UNKNOWN, UNKNOWN
     Dates: start: 2010, end: 2012

REACTIONS (1)
  - Cerebrovascular accident [Not Recovered/Not Resolved]

NARRATIVE: CASE EVENT DATE: 20110216
